FAERS Safety Report 6288787-7 (Version None)
Quarter: 2009Q3

REPORT INFORMATION
  Report Type: 
  Country: None (occurrence: None)
  Receive Date: 20090727
  Receipt Date: 20090713
  Transmission Date: 20100115
  Serious: Yes (Other)
  Sender: FDA-Public Use
  Company Number: 2009S1012412

PATIENT
  Sex: Male

DRUGS (3)
  1. RAMIPRIL [Suspect]
     Indication: INTENTIONAL OVERDOSE
     Dosage: 50 MG; ONCE ORAL
     Route: 048
     Dates: start: 20090713, end: 20090713
  2. ENALAPRIL MALEATE [Suspect]
     Indication: INTENTIONAL OVERDOSE
     Dosage: 300 MG; ONCE ORAL
     Route: 048
     Dates: start: 20090713, end: 20090713
  3. VENLAFAXINE HCL [Suspect]
     Indication: INTENTIONAL OVERDOSE
     Dosage: 750 MG; ONCE ORAL
     Route: 048
     Dates: start: 20090713, end: 20090713

REACTIONS (2)
  - MULTIPLE DRUG OVERDOSE INTENTIONAL [None]
  - SUICIDE ATTEMPT [None]
